FAERS Safety Report 17727735 (Version 1)
Quarter: 2020Q2

REPORT INFORMATION
  Report Type: Spontaneous
  Country: US (occurrence: US)
  Receive Date: 20200429
  Receipt Date: 20200429
  Transmission Date: 20200714
  Serious: Yes (Death, Hospitalization)
  Sender: FDA-Public Use
  Company Number: None

PATIENT
  Age: 76 Year
  Sex: Female
  Weight: 55.8 kg

DRUGS (1)
  1. YESCARTA [Suspect]
     Active Substance: AXICABTAGENE CILOLEUCEL
     Indication: DIFFUSE LARGE B-CELL LYMPHOMA
     Route: 040

REACTIONS (9)
  - Haemoglobin decreased [None]
  - Red blood cell schistocytes present [None]
  - Cytokine release syndrome [None]
  - Platelet count decreased [None]
  - Thrombotic thrombocytopenic purpura [None]
  - Lactic acidosis [None]
  - Disease progression [None]
  - White blood cell count decreased [None]
  - Mental status changes [None]

NARRATIVE: CASE EVENT DATE: 20200420
